FAERS Safety Report 6160267-9 (Version None)
Quarter: 2009Q2

REPORT INFORMATION
  Report Type: 
  Country: None (occurrence: None)
  Receive Date: 20090416
  Receipt Date: 20090416
  Transmission Date: 20091009
  Serious: Yes (Other)
  Sender: FDA-Public Use
  Company Number: None

PATIENT
  Sex: Female
  Weight: 127.0072 kg

DRUGS (1)
  1. METOPROLOL SUCCINATE [Suspect]
     Indication: HYPERTENSION
     Dosage: 2 TABLETS TWICE DAILY ORAL
     Route: 048
     Dates: start: 20090306, end: 20090403

REACTIONS (10)
  - BACK PAIN [None]
  - CHEST PAIN [None]
  - DIZZINESS [None]
  - HYPOAESTHESIA [None]
  - INSOMNIA [None]
  - PAIN [None]
  - PALPITATIONS [None]
  - PRODUCT SUBSTITUTION ISSUE [None]
  - SENSATION OF HEAVINESS [None]
  - THINKING ABNORMAL [None]
